FAERS Safety Report 11252904 (Version 1)
Quarter: 2015Q3

REPORT INFORMATION
  Report Type: Spontaneous
  Country: US (occurrence: US)
  Receive Date: 20150708
  Receipt Date: 20150708
  Transmission Date: 20151125
  Serious: Yes (Death, Hospitalization, Other)
  Sender: FDA-Public Use
  Company Number: US-SUCAMPO PHARMA AMERICAS, LLC-SPI201500622

PATIENT
  Age: 78 Year
  Sex: Male

DRUGS (4)
  1. AMITIZA [Suspect]
     Active Substance: LUBIPROSTONE
     Dosage: 8 MCG, BID
     Route: 048
     Dates: start: 201502
  2. AMIODARONE [Concomitant]
     Active Substance: AMIODARONE
  3. AMITIZA [Suspect]
     Active Substance: LUBIPROSTONE
     Indication: CONSTIPATION
     Dosage: 24 MCG, BID
     Route: 048
     Dates: start: 201502
  4. AMITIZA [Suspect]
     Active Substance: LUBIPROSTONE
     Dosage: 8 MCG, BID
     Route: 048

REACTIONS (6)
  - Pain [Recovered/Resolved]
  - Death [Fatal]
  - Endocarditis [Unknown]
  - Painful respiration [Unknown]
  - Muscle spasms [Recovered/Resolved]
  - Hospitalisation [Unknown]

NARRATIVE: CASE EVENT DATE: 201502
